FAERS Safety Report 7920063-6 (Version None)
Quarter: 2011Q4

REPORT INFORMATION
  Report Type: 
  Country: None (occurrence: None)
  Receive Date: 20111117
  Receipt Date: 20111114
  Transmission Date: 20120403
  Serious: Yes (Death)
  Sender: FDA-Public Use
  Company Number: JP-ROCHE-1012215

PATIENT
  Sex: Male

DRUGS (13)
  1. BUFFERIN (JAPAN) [Concomitant]
     Route: 048
  2. ALLOPURINOL [Concomitant]
     Indication: HYPERTENSION
     Route: 048
  3. SIGMART [Concomitant]
     Route: 048
  4. ACARDI [Concomitant]
     Route: 048
  5. MIRCERA [Suspect]
     Indication: NEPHROGENIC ANAEMIA
     Dosage: DOSAGE IS UNCERTAIN.
     Route: 042
     Dates: start: 20110912
  6. DEXTROMETHORPHAN HYDROBROMIDE [Concomitant]
     Route: 048
  7. GLUCOBAY [Concomitant]
     Indication: DIABETES MELLITUS
     Route: 048
  8. CLARITHROMYCIN [Concomitant]
     Route: 048
  9. LASIX [Concomitant]
     Indication: HYPERTENSION
     Route: 048
  10. CARVEDILOL [Concomitant]
     Indication: HYPERTENSION
     Route: 048
  11. FAMOTIDINE [Concomitant]
     Route: 048
  12. ROCALTROL [Concomitant]
     Indication: OSTEOPOROSIS
     Route: 048
  13. MUCOSOLVAN L [Concomitant]
     Route: 048

REACTIONS (1)
  - PNEUMONIA [None]
